FAERS Safety Report 7709090-1 (Version None)
Quarter: 2011Q3

REPORT INFORMATION
  Report Type: 
  Country: None (occurrence: None)
  Receive Date: 20110825
  Receipt Date: 20110818
  Transmission Date: 20111222
  Serious: Yes (Other)
  Sender: FDA-Public Use
  Company Number: DE-MPIJNJ-2011-00280

PATIENT

DRUGS (2)
  1. VELCADE [Suspect]
     Indication: MULTIPLE MYELOMA
     Dosage: 2.7 MG, UNK
     Route: 042
  2. VELCADE [Suspect]
     Dosage: 5.4 UNK, UNK
     Route: 042
     Dates: start: 20110126, end: 20110126

REACTIONS (5)
  - HYPOTENSION [None]
  - ACCIDENTAL OVERDOSE [None]
  - RENAL FAILURE ACUTE [None]
  - TUMOUR LYSIS SYNDROME [None]
  - LEUKOPENIA [None]
